FAERS Safety Report 8972494 (Version 1)
Quarter: 2012Q4

REPORT INFORMATION
  Report Type: Spontaneous
  Country: US (occurrence: None)
  Receive Date: 20121217
  Receipt Date: 20121217
  Transmission Date: 20130627
  Serious: Yes (Other)
  Sender: FDA-Public Use
  Company Number: None

PATIENT
  Age: 20 Year
  Sex: Female

DRUGS (1)
  1. SYEDA [Suspect]
     Indication: CONTRACEPTION
     Dosage: 1 daily po
     Route: 048

REACTIONS (5)
  - Metrorrhagia [None]
  - Mood swings [None]
  - Abdominal pain [None]
  - Headache [None]
  - Product substitution issue [None]
